FAERS Safety Report 5281292-6 (Version None)
Quarter: 2007Q1

REPORT INFORMATION
  Report Type: 
  Country: None (occurrence: None)
  Receive Date: 20061221
  Receipt Date: 20061016
  Transmission Date: 20070707
  Serious: No
  Sender: FDA-Public Use
  Company Number: SP01004

PATIENT
  Sex: 0

DRUGS (1)
  1. XIFAXAN [Suspect]
     Indication: PROPHYLAXIS AGAINST DIARRHOEA
     Dosage: ORAL
     Route: 048
     Dates: start: 20060901, end: 20061001

REACTIONS (1)
  - CLOSTRIDIUM COLITIS [None]
